FAERS Safety Report 6509361-0 (Version None)
Quarter: 2009Q4

REPORT INFORMATION
  Report Type: 
  Country: None (occurrence: None)
  Receive Date: 20091218
  Receipt Date: 20091218
  Transmission Date: 20100525
  Serious: Yes (Hospitalization, Other)
  Sender: FDA-Public Use
  Company Number: None

PATIENT
  Age: 25 Year
  Sex: Male
  Weight: 87.7 kg

DRUGS (14)
  1. HEPARIN [Suspect]
     Indication: DEEP VEIN THROMBOSIS
     Dosage: 2800 UNITS /HR 43ML/HR IV DRIP
     Route: 041
     Dates: start: 20091116, end: 20091119
  2. HEPARIN [Suspect]
     Indication: DEEP VEIN THROMBOSIS
     Dosage: 2800 UNITS /HR 43ML/HR IV DRIP
     Route: 041
     Dates: start: 20091123, end: 20091126
  3. ACETAMINOPHEN [Concomitant]
  4. ACETYLCYSTEINE [Concomitant]
  5. ALPRAZOLAM [Concomitant]
  6. BENZONATATE [Concomitant]
  7. NEXIUM [Concomitant]
  8. GENTAMICIN [Concomitant]
  9. ROBITUSSIN [Concomitant]
  10. LINEZOLID [Concomitant]
  11. MORPHINE [Concomitant]
  12. MEPHYTON [Concomitant]
  13. RIFAMPIN [Concomitant]
  14. ZOLPIDEM [Concomitant]

REACTIONS (1)
  - HAEMATOMA [None]
